FAERS Safety Report 22103840 (Version 1)
Quarter: 2023Q1

REPORT INFORMATION
  Report Type: Spontaneous
  Country: US (occurrence: None)
  Receive Date: 20230316
  Receipt Date: 20230316
  Transmission Date: 20230417
  Serious: Yes (Death)
  Sender: FDA-Public Use
  Company Number: US-FARMAPROD-202303-0625

PATIENT
  Age: 61 Year
  Sex: Male

DRUGS (16)
  1. OXERVATE [Suspect]
     Active Substance: CENEGERMIN-BKBJ
     Indication: Neurotrophic keratopathy
     Route: 047
     Dates: start: 20200331, end: 20200528
  2. OXERVATE [Suspect]
     Active Substance: CENEGERMIN-BKBJ
     Indication: Hypoaesthesia eye
     Route: 047
     Dates: start: 20201221, end: 202102
  3. OXERVATE [Suspect]
     Active Substance: CENEGERMIN-BKBJ
     Indication: Ulcerative keratitis
     Route: 047
     Dates: start: 20230208
  4. ARTIFICIAL TEARS [Concomitant]
  5. RHOPRESSA [Concomitant]
     Active Substance: NETARSUDIL MESYLATE
  6. COMBIGAN [Concomitant]
     Active Substance: BRIMONIDINE TARTRATE\TIMOLOL MALEATE
     Dosage: 0.2%-0.5%
  7. DORZOLAMIDE [Concomitant]
     Active Substance: DORZOLAMIDE
  8. HUMALOG [Concomitant]
     Active Substance: INSULIN LISPRO
     Dosage: VIAL
  9. TOUJEO MAX [Concomitant]
     Active Substance: INSULIN GLARGINE
  10. CRESTOR [Concomitant]
     Active Substance: ROSUVASTATIN CALCIUM
  11. PEPCID [Concomitant]
     Active Substance: FAMOTIDINE
  12. AMLODIPINE BESYLATE [Concomitant]
     Active Substance: AMLODIPINE BESYLATE
  13. METOPROLOL SUCCINATE [Concomitant]
     Active Substance: METOPROLOL SUCCINATE
  14. OLMESARTAN-AMLODIPINE-HCTZ [Concomitant]
  15. CELLCEPT [Concomitant]
     Active Substance: MYCOPHENOLATE MOFETIL
  16. PROGRAF [Concomitant]
     Active Substance: TACROLIMUS

REACTIONS (1)
  - Death [Fatal]

NARRATIVE: CASE EVENT DATE: 20230219
